FAERS Safety Report 4732928-7 (Version None)
Quarter: 2005Q3

REPORT INFORMATION
  Report Type: 
  Country: None (occurrence: None)
  Receive Date: 20050803
  Receipt Date: 20050526
  Transmission Date: 20060218
  Serious: No
  Sender: FDA-Public Use
  Company Number: US-GLAXOSMITHKLINE-A0560309A

PATIENT
  Age: 69 Year
  Sex: Female

DRUGS (13)
  1. AVANDAMET [Suspect]
     Dosage: 1TAB TWICE PER DAY
     Route: 048
  2. LEVOTHYROXINE [Concomitant]
  3. ALLEGRA [Concomitant]
  4. AMILORIDE HCL [Concomitant]
  5. TOPROL-XL [Concomitant]
  6. ECOTRIN [Concomitant]
  7. TESTOSTERONE [Concomitant]
  8. EFFEXOR [Concomitant]
  9. PROGESTIN INJ [Concomitant]
  10. VITORIN [Concomitant]
  11. BEXTRA [Concomitant]
  12. VIOXX [Concomitant]
  13. MULTI-VITAMIN [Concomitant]

REACTIONS (2)
  - OEDEMA [None]
  - WEIGHT INCREASED [None]
